FAERS Safety Report 6344145-8 (Version None)
Quarter: 2009Q3

REPORT INFORMATION
  Report Type: 
  Country: None (occurrence: None)
  Receive Date: 20090903
  Receipt Date: 20090903
  Transmission Date: 20100115
  Serious: Yes (Other)
  Sender: FDA-Public Use
  Company Number: None

PATIENT
  Sex: Female

DRUGS (1)
  1. FENTANYL TRANSDERMAL SYSTEM [Suspect]
     Dosage: 50MCG/HR 1Q3D TRANSDERMAL
     Route: 062
     Dates: start: 20090822, end: 20090831

REACTIONS (3)
  - DEVICE ADHESION ISSUE [None]
  - PRODUCT SUBSTITUTION ISSUE [None]
  - RASH [None]
